FAERS Safety Report 23988355 (Version 2)
Quarter: 2024Q3

REPORT INFORMATION
  Report Type: Spontaneous
  Country: US (occurrence: US)
  Receive Date: 20240619
  Receipt Date: 20240823
  Transmission Date: 20241016
  Serious: Yes (Other)
  Sender: TEVA
  Company Number: US-TEVA-VS-3209316

PATIENT
  Age: 57 Year
  Sex: Male
  Weight: 99 kg

DRUGS (85)
  1. VALSARTAN [Suspect]
     Active Substance: VALSARTAN
     Indication: Product used for unknown indication
     Route: 065
  2. HYDROCHLOROTHIAZIDE\VALSARTAN [Suspect]
     Active Substance: HYDROCHLOROTHIAZIDE\VALSARTAN
     Indication: Hypertension
     Dosage: 160-25MG TAB DAILY. AUROBINDO
     Route: 065
     Dates: start: 20140311, end: 20140409
  3. HYDROCHLOROTHIAZIDE\VALSARTAN [Suspect]
     Active Substance: HYDROCHLOROTHIAZIDE\VALSARTAN
     Indication: Hypertension
     Dosage: 160-25MG TAB DAILY
     Route: 065
     Dates: start: 20190528, end: 20190825
  4. HYDROCHLOROTHIAZIDE\VALSARTAN [Suspect]
     Active Substance: HYDROCHLOROTHIAZIDE\VALSARTAN
     Indication: Hypertension
     Dosage: 160-25MG TAB DAILY
     Route: 065
     Dates: start: 20190826, end: 20191123
  5. HYDROCHLOROTHIAZIDE\VALSARTAN [Suspect]
     Active Substance: HYDROCHLOROTHIAZIDE\VALSARTAN
     Indication: Hypertension
     Dosage: 160-25MG TAB DAILY
     Route: 065
     Dates: start: 20181128, end: 20190226
  6. HYDROCHLOROTHIAZIDE\VALSARTAN [Suspect]
     Active Substance: HYDROCHLOROTHIAZIDE\VALSARTAN
     Indication: Hypertension
     Dosage: 160-25MG TAB DAILY
     Route: 065
     Dates: start: 20190227, end: 20190527
  7. ALDACTONE [Concomitant]
     Active Substance: SPIRONOLACTONE
     Indication: Hypertension
     Route: 048
     Dates: start: 20240117
  8. TYLENOL [Concomitant]
     Active Substance: ACETAMINOPHEN
     Indication: Pain
     Dosage: LESS THAN 10 TIMES A YEAR , 2 TABLETS
     Dates: start: 200001
  9. IMITREX [Concomitant]
     Active Substance: SUMATRIPTAN SUCCINATE
     Indication: Headache
     Dosage: APPROX 2.50MG TABLETS PER YEAR
     Dates: start: 201201
  10. IMITREX [Concomitant]
     Active Substance: SUMATRIPTAN SUCCINATE
     Indication: Headache
     Dosage: TAKE 1 TABLET BY MOUTH AT ONSET OF HEADCHE ,MAY REPEAT ONCE IN TWO HOURS IF NEEDED
     Route: 048
     Dates: start: 20200526
  11. sars cov 2 [Concomitant]
     Dates: start: 20210210
  12. sars cov 2 [Concomitant]
     Dates: start: 20210310
  13. sars cov 2 [Concomitant]
     Dates: start: 20210130
  14. sars cov 2 [Concomitant]
     Dates: start: 20211108
  15. TETANUS TOXOID, REDUCED DIPHTHERIA TOXOID AND ACELLULAR PERTUSSIS VACC [Concomitant]
     Active Substance: TETANUS TOXOID, REDUCED DIPHTHERIA TOXOID AND ACELLULAR PERTUSSIS VACCINE ADSORBED, TDAP
     Dosage: SITE:LEFT DELTOID
     Route: 030
     Dates: start: 20180601
  16. ADACEL TDAP [Concomitant]
     Active Substance: TETANUS TOXOID, REDUCED DIPHTHERIA TOXOID AND ACELLULAR PERTUSSIS VACCINE ADSORBED, TDAP
     Dates: start: 20080707
  17. FLOMAX [Concomitant]
     Active Substance: TAMSULOSIN HYDROCHLORIDE
     Dosage: 0.4MG CAPSULE ONCE A DAY BEFORE BED ,90DAYS , 2REFILLS
  18. KEFLEX [Concomitant]
     Active Substance: CEPHALEXIN
  19. NORVASC [Concomitant]
     Active Substance: AMLODIPINE BESYLATE
     Route: 048
     Dates: end: 20220822
  20. VALSARTAN [Suspect]
     Active Substance: VALSARTAN
     Dosage: NON TEVA VALSARTAN
     Route: 065
  21. ZYRTEC [Concomitant]
     Active Substance: CETIRIZINE HYDROCHLORIDE
     Route: 048
     Dates: start: 20230726
  22. LOPRESSOR [Concomitant]
     Active Substance: METOPROLOL TARTRATE
     Route: 048
     Dates: start: 20220822, end: 20221020
  23. DIOVAN HCT [Suspect]
     Active Substance: HYDROCHLOROTHIAZIDE\VALSARTAN
     Dosage: 160-25MG TABLET
     Route: 048
     Dates: start: 20210816, end: 20220804
  24. CELEBREX [Concomitant]
     Active Substance: CELECOXIB
  25. PROTONIX [Concomitant]
     Active Substance: PANTOPRAZOLE SODIUM
     Route: 048
     Dates: start: 20220725, end: 20220928
  26. ADVIL [Concomitant]
     Active Substance: IBUPROFEN\IBUPROFEN SODIUM
     Dosage: TAKE 200 MG BY MOUTH EVERY 6 HOURS
     Route: 048
  27. VALSARTAN AND HYDROCHLOROTHIAZIDE [Suspect]
     Active Substance: HYDROCHLOROTHIAZIDE\VALSARTAN
     Indication: Hypertension
     Dosage: 160-25MG
     Route: 065
     Dates: start: 20160107, end: 20160318
  28. VALSARTAN AND HYDROCHLOROTHIAZIDE [Suspect]
     Active Substance: HYDROCHLOROTHIAZIDE\VALSARTAN
     Indication: Hypertension
     Dosage: 160-25MG
     Route: 065
     Dates: start: 20160319, end: 20160605
  29. VALSARTAN AND HYDROCHLOROTHIAZIDE [Suspect]
     Active Substance: HYDROCHLOROTHIAZIDE\VALSARTAN
     Indication: Hypertension
     Dosage: 160-25MG
     Route: 065
     Dates: start: 20160606, end: 20160904
  30. VALSARTAN AND HYDROCHLOROTHIAZIDE [Suspect]
     Active Substance: HYDROCHLOROTHIAZIDE\VALSARTAN
     Indication: Hypertension
     Dosage: 160-25MG
     Route: 065
     Dates: start: 20160905, end: 20161203
  31. VALSARTAN AND HYDROCHLOROTHIAZIDE [Suspect]
     Active Substance: HYDROCHLOROTHIAZIDE\VALSARTAN
     Indication: Hypertension
     Dosage: 160-25MG
     Route: 065
     Dates: start: 20161204, end: 20170303
  32. VALSARTAN AND HYDROCHLOROTHIAZIDE [Suspect]
     Active Substance: HYDROCHLOROTHIAZIDE\VALSARTAN
     Indication: Hypertension
     Dosage: 160-25MG
     Route: 065
     Dates: start: 20170304, end: 20170530
  33. VALSARTAN AND HYDROCHLOROTHIAZIDE [Suspect]
     Active Substance: HYDROCHLOROTHIAZIDE\VALSARTAN
     Indication: Hypertension
     Dosage: 160-25MG
     Route: 065
     Dates: start: 20140410, end: 20140509
  34. VALSARTAN AND HYDROCHLOROTHIAZIDE [Suspect]
     Active Substance: HYDROCHLOROTHIAZIDE\VALSARTAN
     Indication: Hypertension
     Dosage: 160-25 MG
     Route: 065
     Dates: start: 20130417, end: 20130515
  35. VALSARTAN AND HYDROCHLOROTHIAZIDE [Suspect]
     Active Substance: HYDROCHLOROTHIAZIDE\VALSARTAN
     Indication: Hypertension
     Dosage: 160-25 MG
     Route: 065
     Dates: start: 20140207, end: 20140310
  36. VALSARTAN AND HYDROCHLOROTHIAZIDE [Suspect]
     Active Substance: HYDROCHLOROTHIAZIDE\VALSARTAN
     Indication: Hypertension
     Dosage: 160-25 MG
     Route: 065
     Dates: start: 20130516, end: 20130613
  37. VALSARTAN AND HYDROCHLOROTHIAZIDE [Suspect]
     Active Substance: HYDROCHLOROTHIAZIDE\VALSARTAN
     Indication: Hypertension
     Dosage: 160-25 MG
     Route: 065
     Dates: start: 20130614, end: 20130712
  38. VALSARTAN AND HYDROCHLOROTHIAZIDE [Suspect]
     Active Substance: HYDROCHLOROTHIAZIDE\VALSARTAN
     Indication: Hypertension
     Dosage: 160-25 MG
     Route: 065
     Dates: start: 20130713, end: 20130810
  39. VALSARTAN AND HYDROCHLOROTHIAZIDE [Suspect]
     Active Substance: HYDROCHLOROTHIAZIDE\VALSARTAN
     Indication: Hypertension
     Route: 065
     Dates: start: 20130811, end: 20130908
  40. VALSARTAN AND HYDROCHLOROTHIAZIDE [Suspect]
     Active Substance: HYDROCHLOROTHIAZIDE\VALSARTAN
     Indication: Hypertension
     Dosage: 160-25 MG
     Route: 065
     Dates: start: 20130909, end: 20131006
  41. VALSARTAN AND HYDROCHLOROTHIAZIDE [Suspect]
     Active Substance: HYDROCHLOROTHIAZIDE\VALSARTAN
     Indication: Hypertension
     Route: 065
     Dates: start: 20131007, end: 20131106
  42. VALSARTAN AND HYDROCHLOROTHIAZIDE [Suspect]
     Active Substance: HYDROCHLOROTHIAZIDE\VALSARTAN
     Indication: Hypertension
     Dosage: 160-25 MG
     Route: 065
     Dates: start: 20131107, end: 20131209
  43. VALSARTAN AND HYDROCHLOROTHIAZIDE [Suspect]
     Active Substance: HYDROCHLOROTHIAZIDE\VALSARTAN
     Indication: Hypertension
     Dosage: 160-25 MG
     Route: 065
     Dates: start: 20131210, end: 20140109
  44. VALSARTAN AND HYDROCHLOROTHIAZIDE [Suspect]
     Active Substance: HYDROCHLOROTHIAZIDE\VALSARTAN
     Indication: Hypertension
     Dosage: 160-25 MG
     Route: 065
     Dates: start: 20140110, end: 20140206
  45. KETOROLAC [Concomitant]
     Active Substance: KETOROLAC TROMETHAMINE
  46. GENTAMICIN [Concomitant]
     Active Substance: GENTAMICIN
     Dosage: 0.3% EYE DROP
  47. MAXALT [Concomitant]
     Active Substance: RIZATRIPTAN BENZOATE
  48. VALSARTAN AND HYDROCHLOROTHIAZIDE [Suspect]
     Active Substance: HYDROCHLOROTHIAZIDE\VALSARTAN
     Indication: Hypertension
     Dosage: 160-25MG
     Route: 065
     Dates: start: 20170531, end: 20170828
  49. VALSARTAN AND HYDROCHLOROTHIAZIDE [Suspect]
     Active Substance: HYDROCHLOROTHIAZIDE\VALSARTAN
     Indication: Hypertension
     Dosage: 160-25MG
     Route: 065
     Dates: start: 20170829, end: 20171126
  50. VALSARTAN AND HYDROCHLOROTHIAZIDE [Suspect]
     Active Substance: HYDROCHLOROTHIAZIDE\VALSARTAN
     Indication: Hypertension
     Dosage: 160-25MG
     Route: 065
     Dates: start: 20171127, end: 20180226
  51. VALSARTAN AND HYDROCHLOROTHIAZIDE [Suspect]
     Active Substance: HYDROCHLOROTHIAZIDE\VALSARTAN
     Indication: Hypertension
     Dosage: 160-25MG
     Route: 065
     Dates: start: 20180227, end: 20180531
  52. VALSARTAN AND HYDROCHLOROTHIAZIDE [Suspect]
     Active Substance: HYDROCHLOROTHIAZIDE\VALSARTAN
     Indication: Hypertension
     Dosage: 160-25MG
     Route: 065
     Dates: start: 20180601, end: 20180829
  53. VALSARTAN AND HYDROCHLOROTHIAZIDE [Suspect]
     Active Substance: HYDROCHLOROTHIAZIDE\VALSARTAN
     Indication: Hypertension
     Dosage: 160-25MG
     Route: 065
     Dates: start: 20180830, end: 20181127
  54. VALSARTAN AND HYDROCHLOROTHIAZIDE [Suspect]
     Active Substance: HYDROCHLOROTHIAZIDE\VALSARTAN
     Indication: Hypertension
     Dosage: 160-25MG
     Route: 065
     Dates: start: 20191124, end: 20200221
  55. VALSARTAN AND HYDROCHLOROTHIAZIDE [Suspect]
     Active Substance: HYDROCHLOROTHIAZIDE\VALSARTAN
     Indication: Hypertension
     Dosage: 160-25MG
     Route: 065
     Dates: start: 20200222, end: 20200521
  56. VALSARTAN AND HYDROCHLOROTHIAZIDE [Suspect]
     Active Substance: HYDROCHLOROTHIAZIDE\VALSARTAN
     Indication: Hypertension
     Dosage: 160-25MG
     Route: 065
     Dates: start: 20200522, end: 20200819
  57. VALSARTAN AND HYDROCHLOROTHIAZIDE [Suspect]
     Active Substance: HYDROCHLOROTHIAZIDE\VALSARTAN
     Indication: Hypertension
     Dosage: 160-25MG
     Route: 065
     Dates: start: 20200820, end: 20201117
  58. VALSARTAN AND HYDROCHLOROTHIAZIDE [Suspect]
     Active Substance: HYDROCHLOROTHIAZIDE\VALSARTAN
     Indication: Hypertension
     Dosage: 160-25MG
     Route: 065
     Dates: start: 20201118, end: 20210215
  59. VALSARTAN AND HYDROCHLOROTHIAZIDE [Suspect]
     Active Substance: HYDROCHLOROTHIAZIDE\VALSARTAN
     Indication: Hypertension
     Dosage: 160-25MG
     Route: 065
     Dates: start: 20210216, end: 20210516
  60. VALSARTAN AND HYDROCHLOROTHIAZIDE [Suspect]
     Active Substance: HYDROCHLOROTHIAZIDE\VALSARTAN
     Indication: Hypertension
     Dosage: 160-25MG
     Route: 065
     Dates: start: 20210517, end: 20210815
  61. VALSARTAN AND HYDROCHLOROTHIAZIDE [Suspect]
     Active Substance: HYDROCHLOROTHIAZIDE\VALSARTAN
     Indication: Hypertension
     Dosage: 160-25MG
     Route: 065
     Dates: start: 20211113, end: 20220210
  62. VALSARTAN AND HYDROCHLOROTHIAZIDE [Suspect]
     Active Substance: HYDROCHLOROTHIAZIDE\VALSARTAN
     Indication: Hypertension
     Dosage: 160-25MG
     Route: 065
     Dates: start: 20220211, end: 20220511
  63. VALSARTAN AND HYDROCHLOROTHIAZIDE [Suspect]
     Active Substance: HYDROCHLOROTHIAZIDE\VALSARTAN
     Indication: Hypertension
     Dosage: 160-25MG
     Route: 065
     Dates: start: 20220512, end: 20220812
  64. SILDENAFIL CITRATE [Concomitant]
     Active Substance: SILDENAFIL CITRATE
  65. FAMOTIDINE [Concomitant]
     Active Substance: FAMOTIDINE
  66. SODIUM SULFATE, POTASSIUM SULFATE, MAGNESIUM SULFATE [Concomitant]
     Active Substance: MAGNESIUM SULFATE\POTASSIUM SULFATE\SODIUM SULFATE
  67. AMOXICILLIN [Concomitant]
     Active Substance: AMOXICILLIN
  68. CIPROFLOXACIN HYDROCHLORIDE [Concomitant]
     Active Substance: CIPROFLOXACIN HYDROCHLORIDE
  69. OXYCODONE HYDROCHLORIDE [Concomitant]
     Active Substance: OXYCODONE HYDROCHLORIDE
  70. SULFAMETHOXAZOLE [Concomitant]
     Active Substance: SULFAMETHOXAZOLE
  71. DOCUSATE SODIUM [Concomitant]
     Active Substance: DOCUSATE SODIUM
  72. ACETAMINOPHEN [Concomitant]
     Active Substance: ACETAMINOPHEN
  73. EPINEPHRINE [Concomitant]
     Active Substance: EPINEPHRINE
     Dosage: AUTO INJECTOR
  74. PHENAZOPYRIDINE [Concomitant]
     Active Substance: PHENAZOPYRIDINE
  75. HYDROCODONEACETAMIN [Concomitant]
     Dosage: 10-325 MG
  76. CEPHALEXIN [Concomitant]
     Active Substance: CEPHALEXIN
  77. ALBUTEROL [Concomitant]
     Active Substance: ALBUTEROL
  78. DONNATAL [Concomitant]
     Active Substance: ATROPINE SULFATE\HYOSCYAMINE SULFATE\PHENOBARBITAL\SCOPOLAMINE HYDROBROMIDE
  79. METHYLPREDNISOLONE [Concomitant]
     Active Substance: METHYLPREDNISOLONE
  80. AZITHROMYCIN [Concomitant]
     Active Substance: AZITHROMYCIN
  81. CEFDINIR [Concomitant]
     Active Substance: CEFDINIR
  82. CLENPIQ [Concomitant]
     Active Substance: ANHYDROUS CITRIC ACID\MAGNESIUM OXIDE\SODIUM PICOSULFATE
     Dosage: 160 ML?SOLUTION
  83. DIPHENOXYLATE ATROP [Concomitant]
     Dosage: 2.5-0.025
  84. PROCHLORPERAZINE [Concomitant]
     Active Substance: PROCHLORPERAZINE
  85. CELECOXIB [Concomitant]
     Active Substance: CELECOXIB

REACTIONS (4)
  - Renal cancer [Unknown]
  - Prostate cancer [Unknown]
  - Erectile dysfunction [Unknown]
  - Incontinence [Unknown]

NARRATIVE: CASE EVENT DATE: 20221005
